FAERS Safety Report 25055641 (Version 1)
Quarter: 2025Q1

REPORT INFORMATION
  Report Type: Spontaneous
  Country: MX (occurrence: MX)
  Receive Date: 20250309
  Receipt Date: 20250309
  Transmission Date: 20250408
  Serious: Yes (Death, Hospitalization, Other)
  Sender: Steriscience PTE
  Company Number: MX-STERISCIENCE B.V.-2025-ST-000383

PATIENT
  Age: 6 Year
  Sex: Male

DRUGS (24)
  1. MEROPENEM [Suspect]
     Active Substance: MEROPENEM
     Indication: Enterococcal infection
     Route: 065
  2. VANCOMYCIN [Suspect]
     Active Substance: VANCOMYCIN
     Indication: Enterococcal infection
     Route: 065
  3. VANCOMYCIN [Suspect]
     Active Substance: VANCOMYCIN
     Indication: Acinetobacter infection
  4. PIPERACILLIN SODIUM\TAZOBACTAM SODIUM [Suspect]
     Active Substance: PIPERACILLIN SODIUM\TAZOBACTAM SODIUM
     Indication: Antibiotic therapy
     Dosage: 300 MILLIGRAM, Q8H
     Route: 042
  5. AMPICILLIN [Suspect]
     Active Substance: AMPICILLIN
     Indication: Enterococcal infection
     Route: 065
  6. CEFTRIAXONE [Suspect]
     Active Substance: CEFTRIAXONE
     Indication: Enterococcal infection
     Route: 065
  7. COLISTIN [Suspect]
     Active Substance: COLISTIN
     Indication: Acinetobacter infection
     Route: 065
  8. LAMOTRIGINE [Concomitant]
     Active Substance: LAMOTRIGINE
     Indication: Product used for unknown indication
     Route: 065
  9. FUSIDIC ACID [Concomitant]
     Active Substance: FUSIDIC ACID
     Indication: Antibiotic therapy
     Route: 061
  10. FUSIDIC ACID [Concomitant]
     Active Substance: FUSIDIC ACID
     Indication: Skin lesion
  11. DIPHENHYDRAMINE [Concomitant]
     Active Substance: DIPHENHYDRAMINE
     Indication: Symptomatic treatment
     Route: 065
  12. IBUPROFEN [Concomitant]
     Active Substance: IBUPROFEN
     Indication: Symptomatic treatment
     Route: 065
  13. ACETAMINOPHEN [Concomitant]
     Active Substance: ACETAMINOPHEN
     Indication: Symptomatic treatment
     Route: 065
  14. Immunoglobulin [Concomitant]
     Indication: Product used for unknown indication
     Route: 065
  15. BUPRENORPHINE [Concomitant]
     Active Substance: BUPRENORPHINE
     Indication: Product used for unknown indication
     Dosage: 1 MICROGRAM/KILOGRAM, QH
     Route: 065
  16. FRESH FROZEN PLASMA [Concomitant]
     Active Substance: HUMAN PLASMA
     Indication: Coagulation time abnormal
     Route: 065
  17. FRESH FROZEN PLASMA [Concomitant]
     Active Substance: HUMAN PLASMA
     Indication: International normalised ratio abnormal
  18. VITAMIN K [Concomitant]
     Active Substance: PHYTONADIONE
     Indication: Coagulation time abnormal
     Route: 065
  19. VITAMIN K [Concomitant]
     Active Substance: PHYTONADIONE
     Indication: International normalised ratio abnormal
  20. METHYLPREDNISOLONE [Concomitant]
     Active Substance: METHYLPREDNISOLONE
     Indication: Skin lesion
     Route: 065
  21. MORPHINE [Concomitant]
     Active Substance: MORPHINE
     Indication: Analgesic therapy
     Route: 065
  22. LIDOCAINE [Concomitant]
     Active Substance: LIDOCAINE
     Indication: Analgesic therapy
     Route: 065
  23. MAGNESIUM SULFATE [Concomitant]
     Active Substance: MAGNESIUM SULFATE
     Indication: Analgesic therapy
     Route: 065
  24. CEPHALOTHIN [Concomitant]
     Active Substance: CEPHALOTHIN
     Indication: Antibiotic therapy
     Route: 065

REACTIONS (5)
  - Septic shock [Fatal]
  - Drug ineffective [Fatal]
  - Haemodynamic instability [Unknown]
  - Gastrointestinal haemorrhage [Unknown]
  - Thrombocytopenia [Unknown]
